FAERS Safety Report 9156393 (Version 2)
Quarter: 2013Q3

REPORT INFORMATION
  Report Type: Spontaneous
  Country: JP (occurrence: JP)
  Receive Date: 20130312
  Receipt Date: 20130726
  Transmission Date: 20140515
  Serious: Yes (Hospitalization)
  Sender: FDA-Public Use
  Company Number: JP-PFIZER INC-2013081934

PATIENT
  Age: 46 Year
  Sex: Male

DRUGS (3)
  1. CELECOX [Suspect]
     Indication: ANALGESIC THERAPY
     Dosage: 100 MG, 1X/DAY
     Route: 048
     Dates: start: 20130220, end: 20130222
  2. ORGADRONE [Concomitant]
     Dosage: UNK
     Dates: start: 20130220, end: 20130222
  3. XYLOCAINE [Concomitant]
     Dosage: UNK
     Dates: start: 20130220, end: 201302

REACTIONS (3)
  - Flushing [Recovered/Resolved]
  - Pyrexia [Recovered/Resolved]
  - Intentional drug misuse [Unknown]
